FAERS Safety Report 8790559 (Version 1)
Quarter: 2012Q4

REPORT INFORMATION
  Report Type: Spontaneous
  Country: US (occurrence: None)
  Receive Date: 20120912
  Receipt Date: 20120912
  Transmission Date: 20130627
  Serious: Yes (Hospitalization)
  Sender: FDA-Public Use
  Company Number: None

PATIENT
  Age: 52 Year
  Sex: Female
  Weight: 105 kg

DRUGS (9)
  1. PANITUMUMAB [Suspect]
     Indication: OVARIAN CANCER
     Route: 042
     Dates: start: 20110902, end: 20120720
  2. LOVENOX [Concomitant]
  3. ATENOLOL [Concomitant]
  4. LOMOTIL [Concomitant]
  5. ACETAMINOPHEN-HYDROCODONE [Concomitant]
  6. CIMETIDINE [Concomitant]
  7. PROCHLORPERAZINE [Concomitant]
  8. GABAPENTIN [Concomitant]
  9. LOMOTIL [Concomitant]

REACTIONS (16)
  - Ecchymosis [None]
  - Platelet count abnormal [None]
  - Skin ulcer [None]
  - Venous insufficiency [None]
  - Eschar [None]
  - Skin discolouration [None]
  - Aphasia [None]
  - Anxiety [None]
  - Tachycardia [None]
  - Bundle branch block left [None]
  - Hyperkalaemia [None]
  - Hyponatraemia [None]
  - Deep vein thrombosis [None]
  - Infection [None]
  - Calciphylaxis [None]
  - Treatment noncompliance [None]
